FAERS Safety Report 4794293-9 (Version None)
Quarter: 2005Q4

REPORT INFORMATION
  Report Type: 
  Country: None (occurrence: None)
  Receive Date: 20051011
  Receipt Date: 20051006
  Transmission Date: 20060501
  Serious: Yes (Other)
  Sender: FDA-Public Use
  Company Number: DE-GLAXOSMITHKLINE-D0047674A

PATIENT

DRUGS (1)
  1. MALARONE [Suspect]
     Route: 048

REACTIONS (5)
  - DIARRHOEA [None]
  - HALLUCINATION [None]
  - NAUSEA [None]
  - TREMOR [None]
  - VOMITING [None]
